FAERS Safety Report 9547251 (Version 1)
Quarter: 2013Q2

REPORT INFORMATION
  Report Type: Spontaneous
  Country: US (occurrence: None)
  Receive Date: 20130606
  Receipt Date: 20130606
  Transmission Date: 20140414
  Serious: Yes (Other)
  Sender: FDA-Public Use
  Company Number: 163-POMAL-13034019

PATIENT
  Age: 82 Year
  Sex: Female

DRUGS (6)
  1. POMALYST [Suspect]
     Indication: PLASMA CELL MYELOMA
     Route: 048
     Dates: start: 20130311, end: 20130314
  2. LOVASTATIN [Concomitant]
  3. AMLODIPINE [Concomitant]
  4. HYDROMORPHONE [Concomitant]
  5. COUMADIN (WARFARIN SODIUM) [Concomitant]
  6. DEXAMETHASONE [Concomitant]

REACTIONS (1)
  - Rash pruritic [None]
